FAERS Safety Report 6356819-3 (Version None)
Quarter: 2009Q3

REPORT INFORMATION
  Report Type: 
  Country: None (occurrence: None)
  Receive Date: 20090911
  Receipt Date: 20090911
  Transmission Date: 20100115
  Serious: No
  Sender: FDA-Public Use
  Company Number: None

PATIENT
  Age: 61 Year
  Sex: Female
  Weight: 62.5964 kg

DRUGS (2)
  1. BUPROPION HCL [Suspect]
     Indication: DEPRESSION
     Dosage: 2 TABLETS EVERY DAY MOUTH
     Route: 048
     Dates: start: 20090730
  2. BUPROPION HCL [Suspect]
     Indication: DEPRESSION
     Dosage: 2 TABLETS EVERY DAY MOUTH
     Route: 048
     Dates: start: 20090803

REACTIONS (2)
  - INFLUENZA LIKE ILLNESS [None]
  - PANIC REACTION [None]
